FAERS Safety Report 8089463-0 (Version None)
Quarter: 2012Q1

REPORT INFORMATION
  Report Type: 
  Country: None (occurrence: None)
  Receive Date: 20120128
  Receipt Date: 20110728
  Transmission Date: 20120608
  Serious: No
  Sender: FDA-Public Use
  Company Number: US-ABBOTT-11P-163-0834982-00

PATIENT
  Age: 59 Year
  Sex: Female

DRUGS (9)
  1. HUMIRA [Suspect]
     Indication: PSORIASIS
     Dates: start: 20110510
  2. SEROQUEL [Concomitant]
     Indication: BIPOLAR DISORDER
  3. ACYCLOVIR [Concomitant]
     Indication: HERPES VIRUS INFECTION
  4. RESTORIL [Concomitant]
     Indication: INSOMNIA
     Dosage: 2 TO 3 DAILY
  5. SIMVASTATIN [Concomitant]
     Indication: BLOOD CHOLESTEROL INCREASED
  6. GEODON [Concomitant]
     Indication: BIPOLAR DISORDER
  7. DEPAKOTE [Concomitant]
     Indication: BIPOLAR DISORDER
  8. LISINOPRIL [Concomitant]
     Indication: HYPERTENSION
  9. DILTIAZEM HCL [Concomitant]
     Indication: HEART RATE INCREASED

REACTIONS (5)
  - INCORRECT DOSE ADMINISTERED [None]
  - INJECTION SITE ERYTHEMA [None]
  - INJECTION SITE NODULE [None]
  - WRONG TECHNIQUE IN DRUG USAGE PROCESS [None]
  - TREMOR [None]
